FAERS Safety Report 20308669 (Version 9)
Quarter: 2023Q1

REPORT INFORMATION
  Report Type: Report from Study
  Country: US (occurrence: US)
  Receive Date: 20220107
  Receipt Date: 20230202
  Transmission Date: 20230418
  Serious: Yes (Hospitalization, Other)
  Sender: FDA-Public Use
  Company Number: US-TAKEDA-2021TUS078209

PATIENT
  Sex: Female
  Weight: 48.98 kg

DRUGS (32)
  1. HUMAN IMMUNOGLOBULIN G [Suspect]
     Active Substance: HUMAN IMMUNOGLOBULIN G
     Indication: Chronic inflammatory demyelinating polyradiculoneuropathy
     Dosage: 1000 MILLIGRAM/KILOGRAM
     Route: 042
     Dates: start: 20211024
  2. HUMAN IMMUNOGLOBULIN G [Suspect]
     Active Substance: HUMAN IMMUNOGLOBULIN G
     Dosage: 2000 MILLIGRAM/KILOGRAM, Q4WEEKS
     Route: 042
     Dates: start: 20211024
  3. DIPHENHYDRAMINE [Concomitant]
     Active Substance: DIPHENHYDRAMINE
  4. EPINEPHRINE [Concomitant]
     Active Substance: EPINEPHRINE
  5. SODIUM CHLORIDE [Concomitant]
     Active Substance: SODIUM CHLORIDE
  6. LEVOTHYROXINE [Concomitant]
     Active Substance: LEVOTHYROXINE
  7. FIBER (CALCIUM POLYCARBOPHIL) [Concomitant]
     Active Substance: CALCIUM POLYCARBOPHIL
  8. MEMANTINE [Concomitant]
     Active Substance: MEMANTINE
  9. OMEPRAZOLE [Concomitant]
     Active Substance: OMEPRAZOLE
  10. SODIUM BICARBONATE [Concomitant]
     Active Substance: SODIUM BICARBONATE
  11. ACETAMINOPHEN [Concomitant]
     Active Substance: ACETAMINOPHEN
  12. CARBIDOPA\LEVODOPA [Concomitant]
     Active Substance: CARBIDOPA\LEVODOPA
  13. AMIODARONE HYDROCHLORIDE [Concomitant]
     Active Substance: AMIODARONE HYDROCHLORIDE
  14. STOOL SOFTENER (DOCUSATE) [Concomitant]
     Active Substance: DOCUSATE
  15. FAMOTIDINE [Concomitant]
     Active Substance: FAMOTIDINE
  16. PREDNISONE [Concomitant]
     Active Substance: PREDNISONE
  17. CYANOCOBALAMIN\FOLIC ACID\PYRIDOXINE HYDROCHLORIDE [Concomitant]
     Active Substance: CYANOCOBALAMIN\FOLIC ACID\PYRIDOXINE HYDROCHLORIDE
  18. TYLENOL [Concomitant]
     Active Substance: ACETAMINOPHEN
  19. HEPARIN [Concomitant]
     Active Substance: HEPARIN SODIUM
  20. LIDOCAINE [Concomitant]
     Active Substance: LIDOCAINE
  21. CHEW-E [Concomitant]
  22. ASPIRIN [Concomitant]
     Active Substance: ASPIRIN
  23. VITAMIN D [Concomitant]
     Active Substance: VITAMIN D NOS
  24. MELATONIN [Concomitant]
     Active Substance: MELATONIN
  25. FLUOXETINE HYDROCHLORIDE [Concomitant]
     Active Substance: FLUOXETINE HYDROCHLORIDE
  26. AMLODIPINE BESYLATE [Concomitant]
     Active Substance: AMLODIPINE BESYLATE
  27. UNSPECIFIED INGREDIENT [Concomitant]
     Active Substance: UNSPECIFIED INGREDIENT
  28. ALBUTEROL SULFATE [Concomitant]
     Active Substance: ALBUTEROL SULFATE
  29. TRELEGY ELLIPTA [Concomitant]
     Active Substance: FLUTICASONE FUROATE\UMECLIDINIUM BROMIDE\VILANTEROL TRIFENATATE
  30. NITROGLYCERIN [Concomitant]
     Active Substance: NITROGLYCERIN
  31. KCL [Concomitant]
     Active Substance: POTASSIUM CHLORIDE
  32. SODIUM SULFATE [Concomitant]
     Active Substance: SODIUM SULFATE

REACTIONS (14)
  - Chronic obstructive pulmonary disease [Unknown]
  - Aortic stenosis [Unknown]
  - Cellulitis [Unknown]
  - Syncope [Unknown]
  - Pneumonia [Unknown]
  - Infusion related reaction [Unknown]
  - Blood pressure increased [Unknown]
  - Fatigue [Unknown]
  - Headache [Unknown]
  - Blood pressure abnormal [Recovered/Resolved]
  - COVID-19 [Unknown]
  - Aortic aneurysm [Unknown]
  - Pallor [Recovered/Resolved]
  - Off label use [Unknown]
